FAERS Safety Report 4320326-X (Version None)
Quarter: 2004Q1

REPORT INFORMATION
  Report Type: 
  Country: None (occurrence: None)
  Receive Date: 20040317
  Receipt Date: 20040305
  Transmission Date: 20041129
  Serious: Yes (Life-Threatening, Other)
  Sender: FDA-Public Use
  Company Number: GB-JNJFOC-20040203752

PATIENT
  Age: 43 Year
  Sex: Male
  Weight: 75 kg

DRUGS (5)
  1. REOPRO [Suspect]
     Indication: ACUTE MYOCARDIAL INFARCTION
     Dosage: 9.4 ML , INJECTION
     Dates: start: 20040213, end: 20040213
  2. REOPRO [Suspect]
     Indication: CARDIOGENIC SHOCK
     Dosage: 9.4 ML , INJECTION
     Dates: start: 20040213, end: 20040213
  3. ASPIRIN [Concomitant]
  4. CLOPIDOGREL [Concomitant]
  5. HEPARIN [Concomitant]

REACTIONS (5)
  - ARTERIAL GRAFT [None]
  - HAEMORRHAGE [None]
  - IATROGENIC INJURY [None]
  - INTRA-ABDOMINAL HAEMORRHAGE [None]
  - VASCULAR PROCEDURE COMPLICATION [None]
